FAERS Safety Report 10483815 (Version 1)
Quarter: 2014Q3

REPORT INFORMATION
  Report Type: Spontaneous
  Country: EC (occurrence: None)
  Receive Date: 20140929
  Receipt Date: 20140929
  Transmission Date: 20150326
  Serious: No
  Sender: FDA-Public Use
  Company Number: None

PATIENT
  Age: 64 Year
  Sex: Male
  Weight: 53 kg

DRUGS (1)
  1. NEOGAIVAL 3 MG RORMMERS [Suspect]
     Active Substance: ESZOPICLONE
     Indication: INSOMNIA
     Dosage: 1/2 PILL AT BEDTIME TAKEN BY MOUTH
     Route: 048
     Dates: start: 20140917, end: 20140927

REACTIONS (4)
  - Convulsion [None]
  - Dizziness [None]
  - Tremor [None]
  - Nightmare [None]

NARRATIVE: CASE EVENT DATE: 20140926
